FAERS Safety Report 17348294 (Version 1)
Quarter: 2020Q1

REPORT INFORMATION
  Report Type: Spontaneous
  Country: US (occurrence: US)
  Receive Date: 20200129
  Receipt Date: 20200129
  Transmission Date: 20200409
  Serious: Yes (Life-Threatening, Hospitalization, Disabling)
  Sender: FDA-Public Use
  Company Number: None

PATIENT
  Age: 18 Year
  Sex: Male
  Weight: 90 kg

DRUGS (1)
  1. DISPENSARY MARIJUANA PLANT AND WAX CARTRIDGES. [Suspect]
     Active Substance: CANNABIS SATIVA SUBSP. INDICA TOP\DEVICE
     Indication: SUBSTANCE USE
     Dates: start: 20170423, end: 20180423

REACTIONS (4)
  - Substance use [None]
  - Psychotic disorder [None]
  - Generalised anxiety disorder [None]
  - Schizoaffective disorder [None]

NARRATIVE: CASE EVENT DATE: 20180928
